FAERS Safety Report 17760172 (Version 1)
Quarter: 2020Q2

REPORT INFORMATION
  Report Type: Spontaneous
  Country: US (occurrence: US)
  Receive Date: 20200508
  Receipt Date: 20200508
  Transmission Date: 20200714
  Serious: Yes (Death, Life-Threatening, Hospitalization, Other)
  Sender: FDA-Public Use
  Company Number: US-ACCORD-180842

PATIENT
  Age: 61 Year
  Sex: Female

DRUGS (4)
  1. TACROLIMUS. [Suspect]
     Active Substance: TACROLIMUS
     Indication: IMMUNOSUPPRESSANT DRUG THERAPY
     Dosage: MAINTENANCE IMMUNESUPPRESSION
  2. PREDNISONE. [Suspect]
     Active Substance: PREDNISONE
     Indication: IMMUNOSUPPRESSANT DRUG THERAPY
     Dosage: MAINTENANCE IMMUNESUPPRESSION
  3. MYCOPHENOLIC ACID. [Suspect]
     Active Substance: MYCOPHENOLIC ACID
     Indication: IMMUNOSUPPRESSANT DRUG THERAPY
     Dosage: MAINTENANCE IMMUNESUPPRESSION
  4. ACICLOVIR [Concomitant]
     Active Substance: ACYCLOVIR
     Indication: ANTIBIOTIC PROPHYLAXIS

REACTIONS (19)
  - Respiratory failure [Unknown]
  - Sepsis syndrome [Fatal]
  - Enterococcal infection [Fatal]
  - Cholestasis [Fatal]
  - Abdominal wall abscess [Fatal]
  - Encephalitis cytomegalovirus [Fatal]
  - Hypotension [Unknown]
  - Cytomegalovirus infection [Fatal]
  - Diarrhoea [Recovered/Resolved]
  - Hepatic necrosis [Fatal]
  - Subarachnoid haemorrhage [Unknown]
  - Abdominal wall infection [Fatal]
  - Clostridium difficile colitis [Fatal]
  - Pleural effusion [Fatal]
  - Disseminated toxoplasmosis [Fatal]
  - Small intestinal obstruction [Unknown]
  - Atelectasis [Unknown]
  - Pneumonia klebsiella [Fatal]
  - Toxoplasmosis [Fatal]
